FAERS Safety Report 17555646 (Version 2)
Quarter: 2020Q1

REPORT INFORMATION
  Report Type: Spontaneous
  Country: DE (occurrence: DE)
  Receive Date: 20200318
  Receipt Date: 20200320
  Transmission Date: 20200409
  Serious: Yes (Hospitalization)
  Sender: FDA-Public Use
  Company Number: DE-PFIZER INC-2020115099

PATIENT
  Age: 59 Year
  Sex: Female

DRUGS (3)
  1. RAMIPRIL. [Suspect]
     Active Substance: RAMIPRIL
     Dosage: 2.5 MG (2-0-2-0)
  2. AMLODIPINE [Concomitant]
     Active Substance: AMLODIPINE BESYLATE
     Dosage: 5 MG, QD (1-0-0-0)
  3. THYROXIN [Concomitant]
     Active Substance: LEVOTHYROXINE
     Dosage: 50 UG, QD (1-0-0-0)

REACTIONS (3)
  - Chest pain [Unknown]
  - Dizziness [Unknown]
  - Hypertension [Unknown]
